FAERS Safety Report 6977422-8 (Version None)
Quarter: 2010Q3

REPORT INFORMATION
  Report Type: 
  Country: None (occurrence: None)
  Receive Date: 20100910
  Receipt Date: 20100903
  Transmission Date: 20110219
  Serious: Yes (Death)
  Sender: FDA-Public Use
  Company Number: US-ELI_LILLY_AND_COMPANY-US201008005625

PATIENT
  Sex: Male

DRUGS (2)
  1. CIALIS [Suspect]
     Indication: ERECTILE DYSFUNCTION
     Dosage: 5 MG, DAILY (1/D)
     Route: 048
  2. COUMADIN [Concomitant]
     Indication: VENTRICULAR ASSIST DEVICE INSERTION

REACTIONS (2)
  - CEREBROVASCULAR ACCIDENT [None]
  - DENTAL CARIES [None]
